FAERS Safety Report 6231863-5 (Version None)
Quarter: 2009Q2

REPORT INFORMATION
  Report Type: 
  Country: None (occurrence: None)
  Receive Date: 20090612
  Receipt Date: 20090612
  Transmission Date: 20091009
  Serious: Yes (Hospitalization)
  Sender: FDA-Public Use
  Company Number: None

PATIENT
  Sex: Female
  Weight: 54.2502 kg

DRUGS (2)
  1. GEMCITABINE [Suspect]
     Indication: BREAST CANCER METASTATIC
     Dosage: 1250MG/M2 D3, D10/ CYCLE IV IV
     Route: 042
     Dates: start: 20090324, end: 20090528
  2. IMATINIB MESYLATE [Suspect]
     Indication: BREAST CANCER METASTATIC
     Dosage: 400MG/DAY D1-5, D8-12/ CYCLE PO
     Route: 048
     Dates: start: 20090324, end: 20090530

REACTIONS (8)
  - ANAEMIA [None]
  - DEHYDRATION [None]
  - DIALYSIS [None]
  - HAEMOLYTIC URAEMIC SYNDROME [None]
  - HEPATIC FAILURE [None]
  - RENAL FAILURE [None]
  - THROMBOTIC MICROANGIOPATHY [None]
  - THROMBOTIC THROMBOCYTOPENIC PURPURA [None]
